FAERS Safety Report 7347520-8 (Version None)
Quarter: 2011Q1

REPORT INFORMATION
  Report Type: 
  Country: None (occurrence: None)
  Receive Date: 20110311
  Receipt Date: 20110307
  Transmission Date: 20110831
  Serious: Yes (Hospitalization)
  Sender: FDA-Public Use
  Company Number: FR-BRISTOL-MYERS SQUIBB COMPANY-15511660

PATIENT
  Age: 40 Year
  Sex: Female

DRUGS (5)
  1. TAXOL [Suspect]
     Indication: BREAST CANCER
     Route: 042
     Dates: start: 20101109
  2. NAVELBINE [Suspect]
  3. FLUOROURACIL [Suspect]
     Indication: BREAST CANCER
     Route: 042
     Dates: start: 20100615, end: 20101109
  4. FOLINIC ACID [Suspect]
     Indication: BREAST CANCER
     Route: 042
     Dates: start: 20100615, end: 20101109
  5. ENDOXAN [Suspect]
     Indication: BREAST CANCER
     Route: 042
     Dates: start: 20100615, end: 20101109

REACTIONS (5)
  - PYREXIA [None]
  - BACK PAIN [None]
  - HYPOTENSION [None]
  - CHILLS [None]
  - ERYTHEMA [None]
